FAERS Safety Report 16832878 (Version 1)
Quarter: 2019Q3

REPORT INFORMATION
  Report Type: Spontaneous
  Country: PL (occurrence: PL)
  Receive Date: 20190920
  Receipt Date: 20190920
  Transmission Date: 20191005
  Serious: Yes (Other)
  Sender: FDA-Public Use
  Company Number: PL-BAYER-2019-171009

PATIENT
  Age: 47 Year
  Sex: Female

DRUGS (1)
  1. BETAFERON [Suspect]
     Active Substance: INTERFERON BETA-1B
     Indication: MULTIPLE SCLEROSIS
     Dosage: UNK
     Route: 058
     Dates: start: 2012

REACTIONS (7)
  - Expanded disability status scale score increased [None]
  - Paraesthesia [None]
  - Nuclear magnetic resonance imaging [None]
  - Fatigue [None]
  - Multiple sclerosis relapse [None]
  - Expanded disability status scale score increased [None]
  - Hypoaesthesia [None]

NARRATIVE: CASE EVENT DATE: 201407
